FAERS Safety Report 20307798 (Version 1)
Quarter: 2022Q1

REPORT INFORMATION
  Report Type: Spontaneous
  Country: US (occurrence: US)
  Receive Date: 20220107
  Receipt Date: 20220107
  Transmission Date: 20220423
  Serious: No
  Sender: FDA-Public Use
  Company Number: US-ALLERGAN-2138539US

PATIENT
  Sex: Female

DRUGS (2)
  1. QULIPTA [Suspect]
     Active Substance: ATOGEPANT
     Indication: Migraine
     Dosage: 60 MG (ONLY TOOK FOUR PILLS)
     Dates: start: 202110
  2. Other meds (unspecified) [Concomitant]
     Dosage: UNK, QPM

REACTIONS (1)
  - Hallucination [Recovered/Resolved]
